FAERS Safety Report 8428148-5 (Version None)
Quarter: 2012Q2

REPORT INFORMATION
  Report Type: 
  Country: None (occurrence: None)
  Receive Date: 20120611
  Receipt Date: 20120606
  Transmission Date: 20120825
  Serious: Yes (Life-Threatening)
  Sender: FDA-Public Use
  Company Number: US-ASTRAZENECA-2012SE37817

PATIENT
  Age: 66 Year
  Sex: Female

DRUGS (6)
  1. DILTIAZEM [Concomitant]
  2. MEMANTINE HCL [Concomitant]
  3. DONEPEZIL HCL [Concomitant]
  4. ALENDRONATE SODIUM [Concomitant]
  5. QUETIAPINE [Suspect]
     Route: 048
  6. SIMVASTATIN [Concomitant]

REACTIONS (5)
  - HYPERNATRAEMIA [None]
  - RENAL FAILURE ACUTE [None]
  - MYOCARDIAL INFARCTION [None]
  - HYPERGLYCAEMIC HYPEROSMOLAR NONKETOTIC SYNDROME [None]
  - DEHYDRATION [None]
